FAERS Safety Report 5968190-7 (Version None)
Quarter: 2008Q4

REPORT INFORMATION
  Report Type: 
  Country: None (occurrence: None)
  Receive Date: 20081117
  Receipt Date: 20081031
  Transmission Date: 20090506
  Serious: Yes (Other)
  Sender: FDA-Public Use
  Company Number: 081112-0000900

PATIENT

DRUGS (2)
  1. PANHEMATIN [Suspect]
     Indication: DRUG USE FOR UNKNOWN INDICATION
  2. DESPIRAL [Concomitant]

REACTIONS (1)
  - IRON OVERLOAD [None]
